FAERS Safety Report 8958861 (Version 1)
Quarter: 2012Q4

REPORT INFORMATION
  Report Type: 
  Country: JP (occurrence: JP)
  Receive Date: 20121212
  Receipt Date: 20121212
  Transmission Date: 20130627
  Serious: Yes (Other)
  Sender: FDA-Public Use
  Company Number: JP-ASTELLAS-2012JP011468

PATIENT
  Age: 80 Year
  Sex: Male

DRUGS (13)
  1. BETANIS [Suspect]
     Dosage: UNK
     Route: 048
     Dates: end: 20121122
  2. SYMBICORT [Concomitant]
     Route: 055
  3. TRERIEF [Concomitant]
     Route: 048
  4. FP [Concomitant]
     Route: 048
  5. GASMOTIN [Concomitant]
     Route: 048
  6. SYMMETREL [Concomitant]
     Route: 048
  7. REQUIP [Concomitant]
     Route: 048
  8. MENESIT [Concomitant]
     Route: 048
  9. MAGMITT [Concomitant]
     Route: 048
  10. PERMAX                             /00613002/ [Concomitant]
     Route: 048
  11. FOLIROMIN [Concomitant]
     Route: 048
  12. CABASER [Concomitant]
     Route: 048
  13. SPIRIVA [Concomitant]
     Route: 055

REACTIONS (1)
  - Parkinson^s disease [Recovered/Resolved]
